FAERS Safety Report 23675628 (Version 1)
Quarter: 2024Q1

REPORT INFORMATION
  Report Type: Spontaneous
  Country: JP (occurrence: JP)
  Receive Date: 20240327
  Receipt Date: 20240327
  Transmission Date: 20240410
  Serious: Yes (Other)
  Sender: FDA-Public Use
  Company Number: JP-002147023-NVSJ2024JP001487

PATIENT
  Age: 76 Year
  Sex: Female

DRUGS (1)
  1. BEOVU [Suspect]
     Active Substance: BROLUCIZUMAB-DBLL
     Indication: Age-related macular degeneration
     Dosage: 6 MG, RIGHT EYE
     Route: 031
     Dates: start: 20230118, end: 20230118

REACTIONS (4)
  - Keratic precipitates [Recovering/Resolving]
  - Eye inflammation [Recovering/Resolving]
  - Vitreous opacities [Recovering/Resolving]
  - Visual impairment [Unknown]

NARRATIVE: CASE EVENT DATE: 20230227
